FAERS Safety Report 9829879 (Version 2)
Quarter: 2014Q1

REPORT INFORMATION
  Report Type: Report from Study
  Country: US (occurrence: US)
  Receive Date: 20140120
  Receipt Date: 20140120
  Transmission Date: 20141002
  Serious: Yes (Hospitalization)
  Sender: FDA-Public Use
  Company Number: US-ROCHE-715401

PATIENT
  Age: 54 Year
  Sex: Female
  Weight: 66.9 kg

DRUGS (27)
  1. GDC-0941 (PI3K INHIBITOR) [Suspect]
     Indication: BREAST CANCER
     Dosage: MOST RECENT DOSE PRIOR TO SAE: 27/JUN/2010
     Route: 048
  2. TRASTUZUMAB EMTANSINE [Suspect]
     Indication: BREAST CANCER
     Dosage: MOST RECENT DOSE PRIOR TO SAE: 23/JUN/2010
     Route: 042
  3. XALATAN [Concomitant]
     Indication: GLAUCOMA
     Dosage: DOSE: 1 DROP
     Route: 047
     Dates: start: 201001
  4. VITAMIN C [Concomitant]
     Indication: VITAMIN SUPPLEMENTATION
     Route: 048
     Dates: start: 2008
  5. COENZYME Q-10 [Concomitant]
     Indication: VITAMIN SUPPLEMENTATION
     Route: 048
     Dates: start: 1998
  6. VITAMIN D3 [Concomitant]
     Indication: VITAMIN SUPPLEMENTATION
     Route: 048
     Dates: start: 2009
  7. OMEGA 3 [Concomitant]
     Indication: NUTRITIONAL SUPPLEMENTATION
     Route: 048
     Dates: start: 2009
  8. VITAMIN E [Concomitant]
  9. AMBIEN [Concomitant]
     Indication: INSOMNIA
     Route: 048
     Dates: start: 1995
  10. TUMS [Concomitant]
     Indication: DYSPEPSIA
     Route: 048
     Dates: start: 1995, end: 20100702
  11. IBUPROFEN [Concomitant]
     Indication: PAIN
     Route: 048
     Dates: start: 1995
  12. IBUPROFEN [Concomitant]
     Indication: PYREXIA
  13. COMPAZINE [Concomitant]
     Indication: PROPHYLAXIS OF NAUSEA AND VOMITING
     Route: 048
     Dates: start: 20100601
  14. PEPCID AC [Concomitant]
     Indication: DYSPEPSIA
     Route: 048
     Dates: start: 20100608, end: 20100623
  15. ZOFRAN [Concomitant]
     Indication: NAUSEA
     Route: 048
     Dates: start: 20100609
  16. ZOFRAN [Concomitant]
     Indication: VOMITING
     Route: 042
     Dates: start: 20100623, end: 20100623
  17. ZOFRAN [Concomitant]
     Route: 042
     Dates: start: 20100702
  18. TYLENOL [Concomitant]
     Indication: ABDOMINAL PAIN
     Route: 048
     Dates: start: 20100623, end: 20100623
  19. BENADRYL (UNITED STATES) [Concomitant]
     Indication: CHILLS
     Route: 042
     Dates: start: 20100623, end: 20100623
  20. MAGNESIUM CITRATE [Concomitant]
     Indication: CONSTIPATION
     Route: 048
     Dates: start: 20100630, end: 20100630
  21. COLACE [Concomitant]
     Indication: CONSTIPATION
     Route: 048
     Dates: start: 20100630
  22. MIRALAX [Concomitant]
     Indication: CONSTIPATION
     Route: 048
     Dates: start: 20100630
  23. SODIUM CHLORIDE [Concomitant]
     Indication: NAUSEA
     Route: 042
     Dates: start: 20100702
  24. SODIUM CHLORIDE [Concomitant]
     Route: 065
     Dates: start: 20100703, end: 20100703
  25. ZANTAC [Concomitant]
     Indication: DYSPEPSIA
     Route: 048
     Dates: start: 20100629, end: 20100702
  26. REGLAN [Concomitant]
     Indication: NAUSEA
     Route: 048
     Dates: start: 20100630
  27. FLEET ENEMA [Concomitant]
     Indication: CONSTIPATION
     Route: 054
     Dates: start: 20100630, end: 20100630

REACTIONS (1)
  - Upper gastrointestinal haemorrhage [Recovered/Resolved]
